FAERS Safety Report 16156534 (Version 1)
Quarter: 2019Q2

REPORT INFORMATION
  Report Type: Spontaneous
  Country: US (occurrence: US)
  Receive Date: 20190404
  Receipt Date: 20190404
  Transmission Date: 20190711
  Serious: Yes (Hospitalization)
  Sender: FDA-Public Use
  Company Number: US-JNJFOC-20190334710

PATIENT
  Age: 24 Year
  Sex: Male

DRUGS (2)
  1. ACETAMINOPHEN. [Suspect]
     Active Substance: ACETAMINOPHEN
     Route: 048
  2. ACETAMINOPHEN. [Suspect]
     Active Substance: ACETAMINOPHEN
     Indication: PRODUCT USED FOR UNKNOWN INDICATION
     Route: 048
     Dates: start: 201903

REACTIONS (7)
  - Suspected suicide attempt [Unknown]
  - Prothrombin time prolonged [Unknown]
  - Aspartate aminotransferase increased [Not Recovered/Not Resolved]
  - Toxicity to various agents [Unknown]
  - Blood creatinine increased [Not Recovered/Not Resolved]
  - Alanine aminotransferase increased [Not Recovered/Not Resolved]
  - International normalised ratio increased [Recovering/Resolving]
